FAERS Safety Report 20644282 (Version 5)
Quarter: 2022Q2

REPORT INFORMATION
  Report Type: Report from Study
  Country: PL (occurrence: None)
  Receive Date: 20220328
  Receipt Date: 20220615
  Transmission Date: 20220721
  Serious: Yes (Hospitalization)
  Sender: FDA-Public Use
  Company Number: PL-ROCHE-3056624

PATIENT
  Age: 63 Year
  Sex: Female
  Weight: 70 kg

DRUGS (10)
  1. ATEZOLIZUMAB [Suspect]
     Active Substance: ATEZOLIZUMAB
     Indication: HER2 positive breast cancer
     Dosage: START DATE OF MOST RECENT DOSE OF STUDY DRUG PRIOR TO AE: 02/FEB/2022
     Route: 041
     Dates: start: 20210818
  2. ADO-TRASTUZUMAB EMTANSINE [Suspect]
     Active Substance: ADO-TRASTUZUMAB EMTANSINE
     Indication: HER2 positive breast cancer
     Dosage: START DATE OF MOST RECENT DOSE OF STUDY DRUG PRIOR TO AE 02/FEB/2022: 259.2MG/KG
     Route: 041
     Dates: start: 20210818
  3. LETROZOLE [Concomitant]
     Active Substance: LETROZOLE
     Route: 048
     Dates: start: 20210818
  4. ASPIRIN [Concomitant]
     Active Substance: ASPIRIN
     Dates: start: 201411
  5. CLOPIDOGREL BISULFATE [Concomitant]
     Active Substance: CLOPIDOGREL BISULFATE
     Dates: start: 201111
  6. ATROX (POLAND) [Concomitant]
     Dates: start: 201411
  7. BIBLOC [BISOPROLOL FUMARATE] [Concomitant]
     Dates: start: 201411
  8. ZOFENOPRIL [Concomitant]
     Active Substance: ZOFENOPRIL
     Dates: start: 201411
  9. SORBIFER DURULES [Concomitant]
     Dates: start: 20210818
  10. VIVACE (POLAND) [Concomitant]
     Indication: Hypertension
     Dates: start: 20220115

REACTIONS (1)
  - Nephropathy toxic [Recovered/Resolved]

NARRATIVE: CASE EVENT DATE: 20220302
